FAERS Safety Report 5906221-0 (Version None)
Quarter: 2008Q4

REPORT INFORMATION
  Report Type: 
  Country: None (occurrence: None)
  Receive Date: 20081002
  Receipt Date: 20080924
  Transmission Date: 20090506
  Serious: Yes (Other)
  Sender: FDA-Public Use
  Company Number: US-PFIZER INC-2008062409

PATIENT
  Sex: Male

DRUGS (1)
  1. INSPRA [Suspect]
     Indication: GYNAECOMASTIA
     Route: 048

REACTIONS (2)
  - PLATELET COUNT DECREASED [None]
  - SMALL CELL LUNG CANCER STAGE UNSPECIFIED [None]
